FAERS Safety Report 9381708 (Version 1)
Quarter: 2013Q3

REPORT INFORMATION
  Report Type: Report from Study
  Country: DE (occurrence: DE)
  Receive Date: 20130703
  Receipt Date: 20130703
  Transmission Date: 20140515
  Serious: Yes (Hospitalization)
  Sender: FDA-Public Use
  Company Number: DE-ABBOTT-13P-062-1112535-00

PATIENT
  Sex: Male

DRUGS (8)
  1. HUMIRA [Suspect]
     Indication: CROHN^S DISEASE
     Route: 058
     Dates: start: 20120525, end: 20130413
  2. BETA BLOCKER [Concomitant]
     Indication: HYPERTENSION
  3. IODIDE [Concomitant]
     Indication: GOITRE
  4. SALOFALK [Concomitant]
     Indication: CROHN^S DISEASE
  5. AZATHIOPRINE [Concomitant]
     Indication: CROHN^S DISEASE
  6. PANTOPRAZOL [Concomitant]
     Indication: PRODUCT USED FOR UNKNOWN INDICATION
  7. CALCIUM +D3 [Concomitant]
     Indication: PRODUCT USED FOR UNKNOWN INDICATION
  8. CORTISONE [Concomitant]
     Indication: CROHN^S DISEASE

REACTIONS (3)
  - Ileus [Recovering/Resolving]
  - Inflammatory marker increased [Recovering/Resolving]
  - Crohn^s disease [Recovering/Resolving]
